FAERS Safety Report 10401060 (Version 3)
Quarter: 2014Q3

REPORT INFORMATION
  Report Type: Spontaneous
  Country: CO (occurrence: CO)
  Receive Date: 20140822
  Receipt Date: 20140904
  Transmission Date: 20150326
  Serious: Yes (Hospitalization)
  Sender: FDA-Public Use
  Company Number: CO-AMGEN-COLSP2014028114

PATIENT
  Age: 51 Year
  Sex: Female
  Weight: 61 kg

DRUGS (2)
  1. PREDNISOLONE. [Concomitant]
     Active Substance: PREDNISOLONE
     Indication: RHEUMATOID ARTHRITIS
     Dosage: 5 MG, ONCE A DAY
     Route: 048
  2. ENBREL [Suspect]
     Active Substance: ETANERCEPT
     Indication: RHEUMATOID ARTHRITIS
     Dosage: 50 MG, WEEKLY
     Route: 058
     Dates: start: 20140407, end: 201407

REACTIONS (7)
  - Skin reaction [Not Recovered/Not Resolved]
  - Hypersensitivity [Recovered/Resolved]
  - Presyncope [Unknown]
  - Lung disorder [Not Recovered/Not Resolved]
  - Tooth disorder [Unknown]
  - Disease progression [Not Recovered/Not Resolved]
  - Mucosal discolouration [Unknown]

NARRATIVE: CASE EVENT DATE: 201404
